FAERS Safety Report 8083434-6 (Version None)
Quarter: 2012Q1

REPORT INFORMATION
  Report Type: 
  Country: None (occurrence: None)
  Receive Date: 20120127
  Receipt Date: 20110114
  Transmission Date: 20120608
  Serious: No
  Sender: FDA-Public Use
  Company Number: US-ABBOTT-11P-163-0697997-00

PATIENT
  Sex: Female
  Weight: 53.118 kg

DRUGS (5)
  1. HUMIRA [Suspect]
     Indication: RHEUMATOID ARTHRITIS
     Dates: start: 20090401, end: 20100201
  2. SULINDAC [Concomitant]
     Indication: ARTHRALGIA
  3. UNKNOWN MEDICATION [Concomitant]
     Indication: TUBERCULIN TEST POSITIVE
     Dates: start: 20090401, end: 20100101
  4. HUMIRA [Suspect]
     Dates: start: 20100801
  5. METHOTREXATE [Concomitant]
     Indication: RHEUMATOID ARTHRITIS

REACTIONS (5)
  - FATIGUE [None]
  - HERPES ZOSTER [None]
  - ARTHRALGIA [None]
  - CHILLS [None]
  - RHEUMATOID ARTHRITIS [None]
